FAERS Safety Report 26071513 (Version 1)
Quarter: 2025Q4

REPORT INFORMATION
  Report Type: Spontaneous
  Country: IN (occurrence: IN)
  Receive Date: 20251120
  Receipt Date: 20251120
  Transmission Date: 20260118
  Serious: Yes (Other)
  Sender: FRESENIUS KABI
  Company Number: IN-FreseniusKabi-FK202515562

PATIENT
  Age: 27 Year
  Sex: Female
  Weight: 56 kg

DRUGS (1)
  1. ACETAMINOPHEN [Suspect]
     Active Substance: ACETAMINOPHEN
     Indication: Procedural pain
     Dosage: STAT DONE AT 11:45 A.M.
     Dates: start: 20251112

REACTIONS (2)
  - Anaphylactic reaction [Recovered/Resolved]
  - Maternal exposure during pregnancy [Unknown]
